FAERS Safety Report 6589113-6 (Version None)
Quarter: 2010Q1

REPORT INFORMATION
  Report Type: 
  Country: None (occurrence: None)
  Receive Date: 20100212
  Receipt Date: 20100118
  Transmission Date: 20100710
  Serious: Yes (Death)
  Sender: FDA-Public Use
  Company Number: 225610

PATIENT
  Age: 11 Year
  Sex: Male
  Weight: 37.5 kg

DRUGS (20)
  1. ETOPOSIDE [Suspect]
     Indication: ACUTE LEUKAEMIA
     Dosage: 100
     Dates: start: 20090102
  2. CYCLOPHOSPHAMIDE [Suspect]
     Indication: ACUTE LEUKAEMIA
     Dates: start: 20090105
  3. CYCLOPHOSPHAMIDE [Suspect]
     Indication: ACUTE LEUKAEMIA
     Dates: start: 20090109
  4. (CLOFARABINE) [Suspect]
     Indication: ACUTE LEUKAEMIA
     Dosage: 40 MG/M2  INTRAVENOUS
     Route: 042
     Dates: start: 20090105, end: 20090109
  5. METRONIDAZOLE [Concomitant]
  6. (TEICOPLANIN) [Concomitant]
  7. VINCRISTINE [Concomitant]
  8. DEXAMETHASONE [Concomitant]
  9. LACTULOSE [Concomitant]
  10. LOPERAMIDE [Concomitant]
  11. METOCLOPRAMIDE HYDROCHLORIDE [Concomitant]
  12. OMEPRAZOLE [Concomitant]
  13. LORAZEPAM [Concomitant]
  14. BENZYDAMINE [Concomitant]
  15. CHLORHEXIDE [Concomitant]
  16. FLUCONAZOLE [Concomitant]
  17. (PARACETAMOL) [Concomitant]
  18. (RASBURICASE) [Concomitant]
  19. VANCOMYCIN [Concomitant]
  20. LACTULOSE [Concomitant]

REACTIONS (11)
  - BRAIN SCAN ABNORMAL [None]
  - CORONA VIRUS INFECTION [None]
  - HEADACHE [None]
  - HEPATITIS CHOLESTATIC [None]
  - HYPERTENSION [None]
  - ILEUS [None]
  - LOSS OF CONSCIOUSNESS [None]
  - MUCOSAL INFLAMMATION [None]
  - NEUTROPENIC COLITIS [None]
  - PAIN [None]
  - SEPSIS [None]
